FAERS Safety Report 19489873 (Version 1)
Quarter: 2021Q3

REPORT INFORMATION
  Report Type: Spontaneous
  Country: IN (occurrence: IN)
  Receive Date: 20210704
  Receipt Date: 20210704
  Transmission Date: 20211014
  Serious: Yes (Hospitalization)
  Sender: FDA-Public Use
  Company Number: IN-JNJFOC-20210652587

PATIENT
  Age: 27 Year
  Sex: Male
  Weight: 80 kg

DRUGS (9)
  1. MOXIFLOXACIN. [Suspect]
     Active Substance: MOXIFLOXACIN
     Indication: EXTRAPULMONARY TUBERCULOSIS
     Route: 048
     Dates: start: 20200116
  2. CLOFAZIMINE [Suspect]
     Active Substance: CLOFAZIMINE
     Indication: EXTRAPULMONARY TUBERCULOSIS
     Route: 048
     Dates: start: 20200116
  3. OMEPRAZOLE. [Concomitant]
     Active Substance: OMEPRAZOLE
     Indication: ANTACID THERAPY
     Route: 048
     Dates: start: 20200116
  4. METOCLOPRAMIDE. [Concomitant]
     Active Substance: METOCLOPRAMIDE
     Indication: ANTIEMETIC SUPPORTIVE CARE
     Dosage: IF NECESSARY
     Route: 048
     Dates: start: 20200116
  5. PYRIDOXINE [Concomitant]
     Active Substance: PYRIDOXINE
     Indication: PROPHYLAXIS
     Route: 048
     Dates: start: 20200116
  6. DELAMANID [Suspect]
     Active Substance: DELAMANID
     Indication: EXTRAPULMONARY TUBERCULOSIS
     Route: 048
     Dates: start: 20200116
  7. LINEZOLID. [Suspect]
     Active Substance: LINEZOLID
     Indication: EXTRAPULMONARY TUBERCULOSIS
     Route: 048
     Dates: start: 20200116
  8. BEDAQUILINE [Suspect]
     Active Substance: BEDAQUILINE
     Indication: EXTRAPULMONARY TUBERCULOSIS
     Route: 048
     Dates: start: 20200116
  9. ONDANSETRON [Concomitant]
     Active Substance: ONDANSETRON
     Indication: ANTIEMETIC SUPPORTIVE CARE
     Dosage: IF NECESSARY
     Route: 048
     Dates: start: 20210116

REACTIONS (4)
  - Pneumonia bacterial [Unknown]
  - Off label use [Unknown]
  - Tuberculoma of central nervous system [Unknown]
  - Product use in unapproved indication [Unknown]

NARRATIVE: CASE EVENT DATE: 20210619
